FAERS Safety Report 8392351 (Version 7)
Quarter: 2018Q2

REPORT INFORMATION
  Report Type: Report from Study
  Country: JP (occurrence: JP)
  Receive Date: 20120206
  Receipt Date: 20180420
  Transmission Date: 20180711
  Serious: Yes (Other)
  Sender: FDA-Public Use
  Company Number: PHHY2012JP008937

PATIENT
  Age: 63 Year
  Sex: Male
  Weight: 63 kg

DRUGS (13)
  1. ZOMETA [Concomitant]
     Active Substance: ZOLEDRONIC ACID
     Indication: METASTATIC RENAL CELL CARCINOMA
     Dosage: 4 MG, UNK
     Route: 065
     Dates: start: 20110930
  2. FERROMIA [Concomitant]
     Active Substance: SODIUM FERROUS CITRATE
     Indication: ANAEMIA
     Dosage: 100 MG, UNK
     Route: 048
     Dates: start: 20120210, end: 20120614
  3. ZOMETA [Concomitant]
     Active Substance: ZOLEDRONIC ACID
     Dosage: 3.3 MG, UNK
     Route: 065
     Dates: start: 20121025
  4. PURSENNID [Concomitant]
     Active Substance: SENNOSIDES A AND B
     Dosage: 24 G, QD
     Route: 048
     Dates: start: 20120615
  5. NOVAMIN [Concomitant]
     Indication: PROPHYLAXIS OF NAUSEA AND VOMITING
     Dosage: 10 MG, UNK
     Route: 048
     Dates: start: 20111101, end: 20120525
  6. KALIMATE [Concomitant]
     Active Substance: CALCIUM POLYSTYRENE SULFONATE
     Indication: HYPERKALAEMIA
     Dosage: 15 G, UNK
     Route: 048
     Dates: start: 20110510
  7. GASTER [Concomitant]
     Active Substance: FAMOTIDINE
     Indication: CHRONIC GASTRITIS
     Dosage: 20 G, UNK
     Route: 048
     Dates: start: 20111018
  8. AFINITOR [Suspect]
     Active Substance: EVEROLIMUS
     Indication: RENAL CELL CARCINOMA
     Dosage: 10 MG, QD
     Route: 048
     Dates: start: 20111019
  9. LAXOBERON [Concomitant]
     Active Substance: SODIUM PICOSULFATE
     Indication: CONSTIPATION
     Route: 048
     Dates: start: 20120113, end: 20120113
  10. MAGMITT [Concomitant]
     Active Substance: MAGNESIUM OXIDE
     Indication: CONSTIPATION
     Dosage: 1980 MG, UNK
     Route: 048
     Dates: start: 20111216
  11. OXYCONTIN [Concomitant]
     Active Substance: OXYCODONE HYDROCHLORIDE
     Indication: METASTATIC RENAL CELL CARCINOMA
     Dosage: 10 MG, UNK
     Route: 048
     Dates: start: 20111003, end: 20120525
  12. LOXOPROFEN [Concomitant]
     Active Substance: LOXOPROFEN
     Indication: METASTATIC RENAL CELL CARCINOMA
     Dosage: 180 MG, UNK
     Route: 048
     Dates: start: 20111007, end: 20120309
  13. PURSENNID [Concomitant]
     Active Substance: SENNOSIDES A AND B
     Indication: CONSTIPATION
     Dosage: 24 G, UNK
     Route: 048
     Dates: start: 20111018, end: 20120406

REACTIONS (6)
  - Pleural effusion [Recovering/Resolving]
  - Hyperglycaemia [Not Recovered/Not Resolved]
  - C-reactive protein increased [Unknown]
  - Malignant neoplasm progression [Unknown]
  - Pericardial effusion [Recovering/Resolving]
  - Anaemia [Not Recovered/Not Resolved]

NARRATIVE: CASE EVENT DATE: 20111021
